FAERS Safety Report 8162066-5 (Version None)
Quarter: 2012Q1

REPORT INFORMATION
  Report Type: 
  Country: None (occurrence: None)
  Receive Date: 20120224
  Receipt Date: 20110620
  Transmission Date: 20120608
  Serious: No
  Sender: FDA-Public Use
  Company Number: US-BRISTOL-MYERS SQUIBB COMPANY-15844764

PATIENT
  Age: 69 Year
  Sex: Female
  Weight: 66 kg

DRUGS (5)
  1. HORMONES [Concomitant]
     Dosage: PATCH
  2. VAGISIL [Concomitant]
     Dosage: TABS
  3. METFORMIN HCL [Suspect]
     Dosage: YEARS AGO
  4. CRESTOR [Concomitant]
  5. CELEBREX [Concomitant]
     Dosage: DAILY

REACTIONS (1)
  - DRUG INEFFECTIVE [None]
